FAERS Safety Report 19918977 (Version 1)
Quarter: 2021Q4

REPORT INFORMATION
  Report Type: Spontaneous
  Country: US (occurrence: US)
  Receive Date: 20211005
  Receipt Date: 20211005
  Transmission Date: 20220304
  Serious: Yes (Hospitalization)
  Sender: FDA-Public Use
  Company Number: US-MYLANLABS-2021M1069093

PATIENT
  Age: 21 Year
  Sex: Male

DRUGS (20)
  1. OSELTAMIVIR PHOSPHATE [Suspect]
     Active Substance: OSELTAMIVIR PHOSPHATE
     Indication: Influenza
     Dosage: 75 MILLIGRAM, BID, FOR 7 DAYS
     Route: 048
  2. MEROPENEM\VABORBACTAM [Concomitant]
     Active Substance: MEROPENEM\VABORBACTAM
     Indication: Bronchopulmonary aspergillosis
     Dosage: UNK
     Route: 065
  3. MEROPENEM\VABORBACTAM [Concomitant]
     Active Substance: MEROPENEM\VABORBACTAM
     Indication: Mycobacterium abscessus infection
  4. MEROPENEM\VABORBACTAM [Concomitant]
     Active Substance: MEROPENEM\VABORBACTAM
     Indication: Pneumonia
  5. TEDIZOLID [Concomitant]
     Active Substance: TEDIZOLID
     Indication: Bronchopulmonary aspergillosis
     Dosage: UNK
     Route: 065
  6. TEDIZOLID [Concomitant]
     Active Substance: TEDIZOLID
     Indication: Mycobacterium abscessus infection
  7. TEDIZOLID [Concomitant]
     Active Substance: TEDIZOLID
     Indication: Pneumonia
  8. CLOFAZIMINE [Concomitant]
     Active Substance: CLOFAZIMINE
     Indication: Bronchopulmonary aspergillosis
     Dosage: UNK
     Route: 065
  9. CLOFAZIMINE [Concomitant]
     Active Substance: CLOFAZIMINE
     Indication: Mycobacterium abscessus infection
  10. CLOFAZIMINE [Concomitant]
     Active Substance: CLOFAZIMINE
     Indication: Pneumonia
  11. TIGECYCLINE [Concomitant]
     Active Substance: TIGECYCLINE
     Indication: Bronchopulmonary aspergillosis
     Dosage: UNK
     Route: 065
  12. TIGECYCLINE [Concomitant]
     Active Substance: TIGECYCLINE
     Indication: Mycobacterium abscessus infection
  13. TIGECYCLINE [Concomitant]
     Active Substance: TIGECYCLINE
     Indication: Pneumonia
  14. VORICONAZOLE [Concomitant]
     Active Substance: VORICONAZOLE
     Indication: Bronchopulmonary aspergillosis
     Dosage: UNK
     Route: 065
  15. VORICONAZOLE [Concomitant]
     Active Substance: VORICONAZOLE
     Indication: Mycobacterium abscessus infection
  16. VORICONAZOLE [Concomitant]
     Active Substance: VORICONAZOLE
     Indication: Pneumonia
  17. VANCOMYCIN [Concomitant]
     Active Substance: VANCOMYCIN
     Indication: Staphylococcal infection
     Dosage: UNK
     Route: 065
  18. VANCOMYCIN [Concomitant]
     Active Substance: VANCOMYCIN
     Indication: Pseudomonas infection
  19. POLYMYXIN B [Concomitant]
     Active Substance: POLYMYXIN B
     Indication: Staphylococcal infection
     Dosage: UNK
     Route: 065
  20. POLYMYXIN B [Concomitant]
     Active Substance: POLYMYXIN B
     Indication: Pseudomonas infection

REACTIONS (1)
  - Pathogen resistance [Unknown]
